FAERS Safety Report 7428000-8 (Version None)
Quarter: 2011Q2

REPORT INFORMATION
  Report Type: 
  Country: None (occurrence: None)
  Receive Date: 20110412
  Receipt Date: 20110329
  Transmission Date: 20111010
  Serious: Yes (Hospitalization)
  Sender: FDA-Public Use
  Company Number: 030331

PATIENT
  Sex: Female
  Weight: 45.3597 kg

DRUGS (5)
  1. FLAGYL [Concomitant]
  2. DIFLUCAN [Concomitant]
  3. CIMZIA [Suspect]
     Indication: CROHN'S DISEASE
     Dosage: (SUBCUTANEOUS)
     Route: 058
     Dates: start: 20100101, end: 20110217
  4. CORTICOSTEROID NOS [Concomitant]
  5. VITAMIN B12 /00056201/ [Concomitant]

REACTIONS (7)
  - FUNGAL INFECTION [None]
  - ILEITIS [None]
  - ANAL FISTULA [None]
  - ABDOMINAL DISTENSION [None]
  - ABDOMINAL ABSCESS [None]
  - WEIGHT DECREASED [None]
  - FLATULENCE [None]
